FAERS Safety Report 9516329 (Version 1)
Quarter: 2013Q1

REPORT INFORMATION
  Report Type: Spontaneous
  Country: US (occurrence: None)
  Receive Date: 20130305
  Receipt Date: 20130305
  Transmission Date: 20140127
  Serious: Yes (Other)
  Sender: FDA-Public Use
  Company Number: 163-21880-12012058

PATIENT
  Age: 77 Year
  Sex: Male
  Weight: 90.72 kg

DRUGS (14)
  1. REVLIMID (LENALIDOMIDE) (CAPSULES) [Suspect]
     Indication: PLASMA CELL MYELOMA
     Dosage: 21/7
     Route: 048
     Dates: start: 20110528
  2. IMMODIUM [Concomitant]
  3. LOMOTIL [Concomitant]
  4. NYSTATIN [Concomitant]
  5. NEXIUM [Concomitant]
  6. CARVEDILOL [Concomitant]
  7. TRICOR [Concomitant]
  8. AVODART [Concomitant]
  9. FEOSOL [Concomitant]
  10. OSTEO BI-FLEX [Concomitant]
  11. FISH OIL [Concomitant]
  12. ASA [Concomitant]
  13. ROSUVASTATIN [Concomitant]
  14. MEDROL DOSE PACK [Concomitant]

REACTIONS (2)
  - Oesophageal infection [None]
  - Diarrhoea [None]
